FAERS Safety Report 6132543-7 (Version None)
Quarter: 2009Q1

REPORT INFORMATION
  Report Type: 
  Country: None (occurrence: None)
  Receive Date: 20090324
  Receipt Date: 20090309
  Transmission Date: 20090719
  Serious: Yes (Hospitalization)
  Sender: FDA-Public Use
  Company Number: 2009S1004363

PATIENT
  Age: 65 Year
  Sex: Female
  Weight: 50 kg

DRUGS (9)
  1. RAMIPRIL [Suspect]
     Indication: HYPERTENSION
     Dosage: 5 MG; DAILY;
  2. HYDROCHLOROTHIAZIDE [Suspect]
     Indication: HYPERTENSION
     Dosage: 12.5 MG; DAILY; ORAL
     Route: 048
     Dates: end: 20080523
  3. ACTONEL [Concomitant]
  4. CLEXANE [Concomitant]
  5. FENTANYL-25 [Concomitant]
  6. IMUREK /00001501/ [Concomitant]
  7. METAMIZOLE [Concomitant]
  8. NULYTELY [Concomitant]
  9. SIRDALUD /00740701/ [Concomitant]

REACTIONS (1)
  - SYNCOPE [None]
